FAERS Safety Report 5137068-3 (Version None)
Quarter: 2006Q4

REPORT INFORMATION
  Report Type: 
  Country: None (occurrence: None)
  Receive Date: 20061030
  Receipt Date: 20061016
  Transmission Date: 20070319
  Serious: Yes (Other)
  Sender: FDA-Public Use
  Company Number: PHRM2006FR02867

PATIENT
  Age: 54 Year
  Sex: Male

DRUGS (1)
  1. LESCOL [Suspect]
     Route: 048

REACTIONS (1)
  - TENDON DISORDER [None]
